FAERS Safety Report 8852970 (Version 2)
Quarter: 2012Q4

REPORT INFORMATION
  Report Type: 
  Country: US (occurrence: US)
  Receive Date: 20121022
  Receipt Date: 20121227
  Transmission Date: 20130627
  Serious: No
  Sender: FDA-Public Use
  Company Number: US-009507513-1210USA007907

PATIENT
  Age: 5 Year
  Sex: Male

DRUGS (1)
  1. NASONEX [Suspect]
     Indication: RHINITIS ALLERGIC
     Dosage: 1 DF, qd
     Route: 045
     Dates: start: 20120912, end: 20120916

REACTIONS (1)
  - Rhinalgia [Recovering/Resolving]
